FAERS Safety Report 19617196 (Version 3)
Quarter: 2022Q1

REPORT INFORMATION
  Report Type: Spontaneous
  Country: US (occurrence: US)
  Receive Date: 20210728
  Receipt Date: 20220302
  Transmission Date: 20220423
  Serious: Yes (Other)
  Sender: FDA-Public Use
  Company Number: US-JNJFOC-20210743179

PATIENT
  Age: 61 Year
  Sex: Male
  Weight: 70.370 kg

DRUGS (11)
  1. INVEGA SUSTENNA [Suspect]
     Active Substance: PALIPERIDONE PALMITATE
     Indication: Schizophrenia
     Route: 030
     Dates: start: 2003
  2. INVEGA SUSTENNA [Suspect]
     Active Substance: PALIPERIDONE PALMITATE
     Indication: Autism spectrum disorder
  3. INVEGA SUSTENNA [Suspect]
     Active Substance: PALIPERIDONE PALMITATE
     Indication: Mesothelioma
  4. INVEGA SUSTENNA [Suspect]
     Active Substance: PALIPERIDONE PALMITATE
     Indication: Brain neoplasm malignant
  5. RISPERDAL [Suspect]
     Active Substance: RISPERIDONE
     Indication: Product used for unknown indication
     Route: 048
     Dates: start: 2020, end: 202103
  6. LITHIUM [Suspect]
     Active Substance: LITHIUM
     Indication: Product used for unknown indication
     Route: 065
  7. ST. JOHN^S WORT [Concomitant]
     Active Substance: ST. JOHN^S WORT
  8. DEPAKOTE [Concomitant]
     Active Substance: DIVALPROEX SODIUM
  9. GLUCOSAMINE [Concomitant]
     Active Substance: GLUCOSAMINE
  10. CHONDROITIN [Concomitant]
     Active Substance: CHONDROITIN
  11. SYNACORT [Concomitant]
     Active Substance: HYDROCORTISONE

REACTIONS (5)
  - Dementia [Recovering/Resolving]
  - Suicidal ideation [Recovered/Resolved]
  - Hip fracture [Unknown]
  - Intervertebral disc protrusion [Unknown]
  - Hypersomnia [Not Recovered/Not Resolved]
